FAERS Safety Report 24014825 (Version 2)
Quarter: 2024Q3

REPORT INFORMATION
  Report Type: Spontaneous
  Country: US (occurrence: US)
  Receive Date: 20240626
  Receipt Date: 20240711
  Transmission Date: 20241016
  Serious: No
  Sender: BLUEPRINT MEDICINES
  Company Number: US-Blueprint Medicines Corporation-3967

PATIENT
  Sex: Female

DRUGS (1)
  1. AYVAKIT [Suspect]
     Active Substance: AVAPRITINIB
     Indication: Gastrointestinal stromal tumour
     Route: 065
     Dates: start: 20231109

REACTIONS (6)
  - Pruritus [Unknown]
  - Rash [Unknown]
  - Temperature intolerance [Unknown]
  - Fatigue [Unknown]
  - Paraesthesia [Unknown]
  - Muscle spasms [Unknown]
